FAERS Safety Report 7135910-8 (Version None)
Quarter: 2010Q4

REPORT INFORMATION
  Report Type: 
  Country: None (occurrence: None)
  Receive Date: 20101204
  Receipt Date: 20101115
  Transmission Date: 20110411
  Serious: Yes (Other)
  Sender: FDA-Public Use
  Company Number: US-BAYER-201014072NA

PATIENT

DRUGS (42)
  1. YAZ [Suspect]
     Route: 048
     Dates: start: 20070101, end: 20090101
  2. YAZ [Suspect]
     Indication: ACNE
  3. YASMIN [Suspect]
     Route: 048
     Dates: start: 20040101, end: 20060101
  4. YASMIN [Suspect]
     Indication: ACNE
  5. BIAXIN [Concomitant]
     Dates: start: 20080101
  6. DOXYCYCLIN [Concomitant]
     Dates: start: 20060101
  7. DOXYCYCLIN [Concomitant]
     Dates: start: 20090101
  8. DOXYCYCLIN [Concomitant]
     Dates: start: 20100101
  9. BACTRIM DS [Concomitant]
     Dates: start: 20090101
  10. UNCODEABLE ^UNCLASSIFIABLE^ [Concomitant]
     Dosage: SPORADICALLY
  11. POTASSIUM [POTASSIUM] [Concomitant]
     Dates: start: 20070101
  12. KINEVAC [Concomitant]
     Dosage: HEPATOBILIARY SCAN
     Dates: start: 20091007, end: 20091007
  13. COTRIM [Concomitant]
     Dates: start: 20060601
  14. TRAMADOL [Concomitant]
     Dates: start: 20060801
  15. DOXYCYCLINE [Concomitant]
     Dates: start: 20061001
  16. ZOFRAN [Concomitant]
     Dates: start: 20061201
  17. PROMETHAZINE [Concomitant]
     Dates: start: 20061201
  18. METOCLOPRAMID [Concomitant]
     Dates: start: 20061201
  19. OXYCODONE [Concomitant]
     Dates: start: 20060601
  20. TRETINOIN [Concomitant]
     Dates: start: 20060601
  21. SERTRALINE [Concomitant]
     Dates: start: 20080101
  22. LOESTRIN 1.5/30 [Concomitant]
     Dates: start: 20080901
  23. LOESTRIN 1.5/30 [Concomitant]
     Dates: start: 20081101
  24. METHYLPREDNISOLONE ACETATE [Concomitant]
     Dates: start: 20090601
  25. BUPROPION [Concomitant]
     Dates: start: 20090301
  26. BUPROPION [Concomitant]
     Dates: start: 20090301
  27. CLINDAMYCIN [Concomitant]
     Dates: start: 20090601
  28. ALPRAZOLAM [Concomitant]
     Dates: start: 20090601
  29. ALPRAZOLAM [Concomitant]
     Dates: start: 20090601
  30. OXYCODONE HCL AND ACETAMINOPHEN [Concomitant]
     Dates: start: 20090601
  31. IBUPROFEN [Concomitant]
     Dates: start: 20061201
  32. LEVAQUIN [Concomitant]
     Dates: start: 20080201
  33. ONDANSETRON [Concomitant]
     Dates: start: 20080201
  34. OXYCODONE [Concomitant]
     Dates: start: 20080201
  35. DRYSOL [Concomitant]
     Dates: start: 20080401
  36. CLINDAMYCIN [Concomitant]
     Dates: start: 20081001
  37. CLINDAMYCIN [Concomitant]
     Dates: start: 20090601
  38. DOXYCYCLIN [Concomitant]
     Dates: start: 20081001
  39. DOXYCYCLIN [Concomitant]
     Dates: start: 20081201
  40. ACCUTANE [Concomitant]
  41. LAMICTAL [Concomitant]
  42. ADDERALL 10 [Concomitant]

REACTIONS (20)
  - ABDOMINAL DISCOMFORT [None]
  - ABORTION SPONTANEOUS [None]
  - ACNE [None]
  - BACK PAIN [None]
  - BILIARY ADENOMA [None]
  - BILIARY COLIC [None]
  - BREECH PRESENTATION [None]
  - CAESAREAN SECTION [None]
  - DECREASED APPETITE [None]
  - DIARRHOEA [None]
  - FIBROSIS [None]
  - GALLBLADDER DISORDER [None]
  - GALLBLADDER ENLARGEMENT [None]
  - GALLBLADDER NON-FUNCTIONING [None]
  - MUSCULOSKELETAL PAIN [None]
  - NAUSEA [None]
  - PAIN [None]
  - PNEUMONIA [None]
  - PREGNANCY [None]
  - WEIGHT DECREASED [None]
